FAERS Safety Report 7002858-9 (Version None)
Quarter: 2010Q3

REPORT INFORMATION
  Report Type: 
  Country: None (occurrence: None)
  Receive Date: 20100920
  Receipt Date: 20091008
  Transmission Date: 20110219
  Serious: No
  Sender: FDA-Public Use
  Company Number: US-ASTRAZENECA-2009SE18885

PATIENT
  Age: 44 Year
  Sex: Male

DRUGS (4)
  1. SEROQUEL [Suspect]
     Dosage: 575 MG
     Route: 048
  2. DEPAKOTE [Concomitant]
  3. IRON [Concomitant]
  4. TAGAMET [Concomitant]

REACTIONS (5)
  - ABASIA [None]
  - DIZZINESS [None]
  - DYSARTHRIA [None]
  - FALL [None]
  - GAIT DISTURBANCE [None]
